FAERS Safety Report 8624410-1 (Version None)
Quarter: 2012Q3

REPORT INFORMATION
  Report Type: 
  Country: None (occurrence: None)
  Receive Date: 20120827
  Receipt Date: 20120821
  Transmission Date: 20120928
  Serious: Yes (Other)
  Sender: FDA-Public Use
  Company Number: PHHY2012JP069385

PATIENT
  Age: 62 Year
  Sex: Male

DRUGS (9)
  1. CYCLOSPORINE [Suspect]
     Indication: RENAL TRANSPLANT
  2. BASILIXIMAB [Suspect]
     Indication: RENAL TRANSPLANT
     Dosage: 20 MG, DAILY
     Route: 042
  3. SILECE [Concomitant]
     Route: 048
  4. METHYLPREDNISOLONE [Concomitant]
     Route: 048
  5. DEPAS [Concomitant]
  6. WARFARIN SODIUM [Concomitant]
     Route: 048
  7. RISPERDAL [Concomitant]
     Route: 048
  8. MYCOPHENOLATE MEFETIL [Concomitant]
     Dosage: 1500 MG, UNK
     Route: 048
  9. NITRAZEPAM [Concomitant]
     Route: 048

REACTIONS (4)
  - IMMUNOSUPPRESSANT DRUG LEVEL INCREASED [None]
  - NEPHROPATHY TOXIC [None]
  - BLOOD PRESSURE DECREASED [None]
  - TOXICITY TO VARIOUS AGENTS [None]
